FAERS Safety Report 15784925 (Version 1)
Quarter: 2019Q1

REPORT INFORMATION
  Report Type: Spontaneous
  Country: US (occurrence: US)
  Receive Date: 20190103
  Receipt Date: 20190103
  Transmission Date: 20190417
  Serious: No
  Sender: FDA-Public Use
  Company Number: US-TEVA-2018-US-986739

PATIENT
  Sex: Female

DRUGS (2)
  1. DARIFENACIN. [Suspect]
     Active Substance: DARIFENACIN
     Indication: MICTURITION URGENCY
     Route: 065
  2. DARIFENACIN. [Suspect]
     Active Substance: DARIFENACIN
     Indication: POLLAKIURIA

REACTIONS (1)
  - Drug ineffective [Unknown]
